FAERS Safety Report 6440963-6 (Version None)
Quarter: 2009Q4

REPORT INFORMATION
  Report Type: 
  Country: None (occurrence: None)
  Receive Date: 20091116
  Receipt Date: 20091104
  Transmission Date: 20100525
  Serious: Yes (Hospitalization)
  Sender: FDA-Public Use
  Company Number: GB-ROCHE-666388

PATIENT
  Age: 62 Year
  Sex: Female

DRUGS (3)
  1. TAMIFLU [Suspect]
     Indication: H1N1 INFLUENZA
     Route: 065
     Dates: start: 20091102, end: 20091102
  2. AMOXICILLIN [Concomitant]
  3. TIOTROPIUM BROMIDE [Concomitant]
     Route: 065

REACTIONS (3)
  - ERYTHEMA [None]
  - PHARYNGEAL OEDEMA [None]
  - SWELLING FACE [None]
